FAERS Safety Report 4327310-0 (Version None)
Quarter: 2004Q1

REPORT INFORMATION
  Report Type: 
  Country: None (occurrence: None)
  Receive Date: 20040325
  Receipt Date: 20040218
  Transmission Date: 20041129
  Serious: No
  Sender: FDA-Public Use
  Company Number: PHEH2004US02104

PATIENT
  Age: 3 Year
  Sex: Female

DRUGS (5)
  1. TRILEPTAL [Suspect]
     Indication: EPILEPSY
     Dosage: 4MG IN AM+4.5ML AT NIGHT, ORAL
     Route: 048
  2. AUGMENTIN (CLAVULANATE POTASSIUM) [Concomitant]
  3. ALBUTEROL [Concomitant]
  4. XOPENEX [Concomitant]
  5. ZYRTEV (CETIRIZINE HYDROCHLORIDE) [Concomitant]

REACTIONS (2)
  - EAR INFECTION [None]
  - SOMNOLENCE [None]
